FAERS Safety Report 18408391 (Version 1)
Quarter: 2020Q4

REPORT INFORMATION
  Report Type: Spontaneous
  Country: FR (occurrence: FR)
  Receive Date: 20201020
  Receipt Date: 20201020
  Transmission Date: 20210114
  Serious: Yes (Hospitalization)
  Sender: FDA-Public Use
  Company Number: FR-BAUSCH-BL-2020-029357

PATIENT
  Age: 53 Year
  Sex: Male

DRUGS (3)
  1. ACYCLOVIR. [Suspect]
     Active Substance: ACYCLOVIR
     Indication: VARICELLA ZOSTER PNEUMONIA
     Route: 042
  2. RUXOLITINIB [Concomitant]
     Active Substance: RUXOLITINIB
     Indication: GRAFT VERSUS HOST DISEASE
     Route: 065
  3. PIPERACILLIN AND TAZOBACTAM [Concomitant]
     Active Substance: PIPERACILLIN SODIUM\TAZOBACTAM SODIUM
     Indication: VARICELLA ZOSTER PNEUMONIA

REACTIONS (3)
  - Nephropathy toxic [Recovering/Resolving]
  - Toxicity to various agents [Recovering/Resolving]
  - Polyuria [Recovering/Resolving]
